FAERS Safety Report 7765592-3 (Version None)
Quarter: 2011Q3

REPORT INFORMATION
  Report Type: 
  Country: None (occurrence: None)
  Receive Date: 20110921
  Receipt Date: 20110912
  Transmission Date: 20111222
  Serious: Yes (Other)
  Sender: FDA-Public Use
  Company Number: PHHY2010US86663

PATIENT
  Sex: Male
  Weight: 93.4 kg

DRUGS (17)
  1. MORPHINE [Concomitant]
  2. TRAZODONE HYDROCHLORIDE [Concomitant]
  3. NASONEX [Concomitant]
  4. ZYRTEC [Concomitant]
  5. M.V.I. [Concomitant]
  6. METFORMIN HCL [Concomitant]
  7. CELEXA [Concomitant]
  8. CRESTOR [Concomitant]
  9. LIDODERM [Concomitant]
  10. ASPIRIN [Concomitant]
  11. METOPROLOL - SLOW RELEASE [Concomitant]
  12. TASIGNA [Suspect]
     Indication: CHRONIC MYELOID LEUKAEMIA
     Dosage: 200 MG, BID
     Route: 048
     Dates: start: 20100701
  13. KLOR-CON [Concomitant]
     Dosage: 10 MEQ, QD
     Route: 048
  14. SEROQUEL [Concomitant]
     Dosage: UNK UKN, UNK
  15. GABAPENTIN [Concomitant]
  16. OXYCODONE HCL [Concomitant]
  17. XANAX [Concomitant]

REACTIONS (7)
  - DYSPNOEA [None]
  - PAIN [None]
  - HAEMATOCHEZIA [None]
  - WEIGHT INCREASED [None]
  - CONSTIPATION [None]
  - FATIGUE [None]
  - SWELLING [None]
